FAERS Safety Report 8348342-1 (Version None)
Quarter: 2012Q2

REPORT INFORMATION
  Report Type: 
  Country: None (occurrence: None)
  Receive Date: 20120509
  Receipt Date: 20120430
  Transmission Date: 20120825
  Serious: Yes (Other)
  Sender: FDA-Public Use
  Company Number: US-PFIZER INC-2012103283

PATIENT
  Sex: Male
  Weight: 61.224 kg

DRUGS (22)
  1. TOVIAZ [Suspect]
     Indication: POLLAKIURIA
     Dosage: 4 MG, 1X/DAY
     Route: 048
     Dates: start: 20120423
  2. ACETYLSALICYLIC ACID [Concomitant]
     Indication: CARDIAC DISORDER
     Dosage: 81 MG, 1X/DAY
  3. KLONOPIN [Concomitant]
     Indication: ANXIETY
  4. LITHIUM [Concomitant]
     Indication: DEPRESSION
     Dosage: UNK
  5. CLOZAPINE [Concomitant]
     Indication: ANXIETY
     Dosage: UNK, 3X/DAY
  6. TOVIAZ [Suspect]
     Indication: HYPERTONIC BLADDER
     Dosage: 4 MG, 1X/DAY
     Route: 048
     Dates: start: 20120423
  7. AVODART [Concomitant]
     Indication: PROSTATOMEGALY
     Dosage: 0.5 MG, 1X/DAY
  8. RESTORIL [Concomitant]
     Indication: SLEEP DISORDER
     Dosage: 30 MG, 1X/DAY
  9. AVODART [Concomitant]
     Dosage: UNK, 1X/DAY
  10. ZOCOR [Concomitant]
     Indication: BLOOD CHOLESTEROL INCREASED
     Dosage: UNK, 1X/DAY
  11. TEMAZEPAM [Concomitant]
     Indication: INSOMNIA
     Dosage: 30 MG, 1X/DAY
  12. KLONOPIN [Concomitant]
     Indication: DEPRESSION
     Dosage: UNK
  13. FENOFIBRATE [Concomitant]
     Dosage: 150 MG, 1X/DAY
  14. AVODART [Concomitant]
     Dosage: 0.5 MG, 1X/DAY
  15. CELEBREX [Concomitant]
     Dosage: UNK
  16. NITROGLYCERIN [Concomitant]
     Indication: CHEST PAIN
     Dosage: UNK
  17. FENOFIBRATE [Concomitant]
     Indication: BLOOD CHOLESTEROL INCREASED
     Dosage: UNK, 1X/DAY
  18. FENOFIBRATE [Concomitant]
     Dosage: UNK
  19. LITHIUM [Concomitant]
     Indication: BIPOLAR I DISORDER
     Dosage: 300 MG, 2X/DAY
  20. SIMVASTATIN [Concomitant]
     Indication: BLOOD CHOLESTEROL INCREASED
     Dosage: UNK
  21. ZOCOR [Concomitant]
     Dosage: 40 MG, 1X/DAY
  22. ACETYLSALICYLIC ACID [Concomitant]
     Indication: HEADACHE
     Dosage: 81 MG, 1X/DAY

REACTIONS (9)
  - BIPOLAR I DISORDER [None]
  - AGGRESSION [None]
  - ANXIETY [None]
  - DRY MOUTH [None]
  - ORAL DISCOMFORT [None]
  - DRUG EFFECT DECREASED [None]
  - AGITATION [None]
  - FEELING ABNORMAL [None]
  - FRUSTRATION [None]
